FAERS Safety Report 14160498 (Version 1)
Quarter: 2017Q4

REPORT INFORMATION
  Report Type: Spontaneous
  Country: SE (occurrence: SE)
  Receive Date: 20171104
  Receipt Date: 20171104
  Transmission Date: 20180321
  Serious: Yes (Hospitalization)
  Sender: FDA-Public Use
  Company Number: SE-CONCORDIA PHARMACEUTICALS INC.-GSH201710-006130

PATIENT
  Age: 62 Year
  Sex: Female

DRUGS (2)
  1. PREDNISOLONE. [Suspect]
     Active Substance: PREDNISOLONE
  2. VAXIGRIP [Suspect]
     Active Substance: INFLUENZA VIRUS VACCINE

REACTIONS (5)
  - Contusion [Recovered/Resolved]
  - Personality change [Recovered/Resolved]
  - Petechiae [Recovered/Resolved]
  - Bradyphrenia [Recovered/Resolved]
  - Thrombocytopenia [Recovered/Resolved]
